FAERS Safety Report 8725323 (Version 2)
Quarter: 2012Q4

REPORT INFORMATION
  Report Type: 
  Country: US (occurrence: US)
  Receive Date: 20120815
  Receipt Date: 20120914
  Transmission Date: 20130627
  Serious: Yes (Hospitalization)
  Sender: FDA-Public Use
  Company Number: US-ACTELION-A-NJ2012-65206

PATIENT
  Age: 80 Year
  Sex: Female

DRUGS (5)
  1. TRACLEER [Suspect]
     Indication: PULMONARY ARTERIAL HYPERTENSION
     Dosage: UNK
     Route: 048
     Dates: start: 200811
  2. COUMADIN [Concomitant]
  3. PLAVIX [Concomitant]
  4. LASIX [Concomitant]
  5. DIGOXIN [Concomitant]

REACTIONS (3)
  - Lung infiltration [Unknown]
  - Bronchoscopy [Unknown]
  - Malaise [Unknown]
